FAERS Safety Report 10258607 (Version 1)
Quarter: 2014Q2

REPORT INFORMATION
  Report Type: Spontaneous
  Country: US (occurrence: US)
  Receive Date: 20140625
  Receipt Date: 20140625
  Transmission Date: 20141212
  Serious: Yes (Other)
  Sender: FDA-Public Use
  Company Number: ALCN2014US003677

PATIENT
  Sex: Male

DRUGS (10)
  1. ILEVRO [Suspect]
     Dosage: 1 GTT, QD
     Route: 047
     Dates: start: 20140519, end: 20140616
  2. AZOPT [Suspect]
     Indication: GLAUCOMA
     Dosage: 1 GTT, BID
     Route: 047
     Dates: start: 20140531
  3. PREDNISOLONE ACETATE [Suspect]
     Dosage: 1 GTT, BID
     Route: 047
  4. BENICAR [Concomitant]
     Dosage: 1 U, UNK
     Route: 048
  5. CRESTOR [Concomitant]
     Indication: BLOOD CHOLESTEROL
     Dosage: 1 U, QD
     Route: 048
  6. FLOMAX ^BOEHRINGER INGELHEIM^ [Concomitant]
  7. AMLODIPINE [Concomitant]
     Dosage: 10 MG, QD
  8. ZINC GLUCONATE [Concomitant]
  9. ZIOPTAN [Concomitant]
     Route: 047
  10. ASPIRIN [Concomitant]
     Dosage: 81 MG, QD
     Route: 048

REACTIONS (4)
  - Dizziness [Recovering/Resolving]
  - Dyspnoea [Recovering/Resolving]
  - Rash [Not Recovered/Not Resolved]
  - Documented hypersensitivity to administered drug [Unknown]
